FAERS Safety Report 25772997 (Version 1)
Quarter: 2025Q3

REPORT INFORMATION
  Report Type: Spontaneous
  Country: EU (occurrence: EU)
  Receive Date: 20250908
  Receipt Date: 20250908
  Transmission Date: 20251020
  Serious: Yes (Other)
  Sender: AUROBINDO
  Company Number: EU-AUROBINDO-AUR-APL-2025-044657

PATIENT
  Age: 67 Year
  Sex: Female

DRUGS (9)
  1. CARBOPLATIN [Suspect]
     Active Substance: CARBOPLATIN
     Indication: Lung adenocarcinoma stage IV
     Route: 065
  2. PACLITAXEL [Suspect]
     Active Substance: PACLITAXEL
     Indication: Lung adenocarcinoma stage IV
     Route: 065
     Dates: start: 201906
  3. AFATINIB [Suspect]
     Active Substance: AFATINIB
     Indication: Lung adenocarcinoma stage IV
     Route: 065
     Dates: start: 201703
  4. CRIZOTINIB [Suspect]
     Active Substance: CRIZOTINIB
     Indication: Lung adenocarcinoma stage IV
     Route: 065
     Dates: start: 201806, end: 201808
  5. OSIMERTINIB [Suspect]
     Active Substance: OSIMERTINIB
     Indication: Lung adenocarcinoma stage IV
     Route: 065
     Dates: start: 201808
  6. OSIMERTINIB [Suspect]
     Active Substance: OSIMERTINIB
     Route: 065
     Dates: start: 201906
  7. ETOPOSIDE [Suspect]
     Active Substance: ETOPOSIDE
     Indication: Lung adenocarcinoma stage IV
     Route: 065
     Dates: start: 201903
  8. CISPLATIN [Suspect]
     Active Substance: CISPLATIN
     Indication: Lung adenocarcinoma stage IV
     Route: 065
     Dates: start: 201903
  9. ALECTINIB [Suspect]
     Active Substance: ALECTINIB
     Indication: Lung adenocarcinoma stage IV
     Route: 065
     Dates: start: 201912

REACTIONS (1)
  - Drug ineffective [Unknown]
